FAERS Safety Report 9069361 (Version 1)
Quarter: 2013Q1

REPORT INFORMATION
  Report Type: Spontaneous
  Country: US (occurrence: US)
  Receive Date: 20130215
  Receipt Date: 20130215
  Transmission Date: 20140127
  Serious: Yes (Death)
  Sender: FDA-Public Use
  Company Number: US-BANPHARM-20130834

PATIENT
  Age: 54 Year
  Sex: Male

DRUGS (4)
  1. DIPHENHYDRAMINE UNKNOWN PRODUCT [Suspect]
  2. COCAINE [Suspect]
  3. OXYCODONE [Suspect]
  4. ACETAMINOPHEN [Suspect]

REACTIONS (1)
  - Cardio-respiratory arrest [Fatal]
